FAERS Safety Report 6507641-6 (Version None)
Quarter: 2009Q4

REPORT INFORMATION
  Report Type: 
  Country: None (occurrence: None)
  Receive Date: 20091216
  Receipt Date: 20091201
  Transmission Date: 20100525
  Serious: Yes (Death)
  Sender: FDA-Public Use
  Company Number: 08-177

PATIENT
  Age: 46 Year
  Sex: Male
  Weight: 83.9154 kg

DRUGS (12)
  1. FAZACLO ODT [Suspect]
     Indication: SCHIZOPHRENIA
     Dosage: 100 MG PO DAILY
     Route: 048
     Dates: start: 20071019, end: 20071222
  2. ZESTRIL [Concomitant]
  3. COGENTIN [Concomitant]
  4. FORTEO [Concomitant]
  5. APRESOLINE [Concomitant]
  6. MACRODANTIN [Concomitant]
  7. FLEXERIL [Concomitant]
  8. ZYPREXA [Concomitant]
  9. DEPAKOTE [Concomitant]
  10. PROLIXIN DECANOATE [Concomitant]
  11. XANAX [Concomitant]
  12. M.V.I. [Concomitant]

REACTIONS (3)
  - ACUTE MYOCARDIAL INFARCTION [None]
  - CARDIO-RESPIRATORY ARREST [None]
  - UNRESPONSIVE TO STIMULI [None]
